FAERS Safety Report 19945699 (Version 1)
Quarter: 2021Q4

REPORT INFORMATION
  Report Type: Spontaneous
  Country: PL (occurrence: PL)
  Receive Date: 20211012
  Receipt Date: 20211012
  Transmission Date: 20220303
  Serious: Yes (Other)
  Sender: FDA-Public Use
  Company Number: PL-002147023-NVSC2021PL136042

PATIENT
  Age: 36 Year
  Sex: Female

DRUGS (9)
  1. ZOLEDRONIC ACID [Suspect]
     Active Substance: ZOLEDRONIC ACID
     Indication: Breast cancer metastatic
     Dosage: 4 MILLIGRAM, 28D CYCLE (4 MG (EVERY 28 DAYS) )
     Route: 065
     Dates: start: 20200924
  2. ERGOCALCIFEROL [Suspect]
     Active Substance: ERGOCALCIFEROL
     Indication: Breast cancer metastatic
     Dosage: UNK
     Route: 065
     Dates: start: 20200924
  3. KISQALI [Suspect]
     Active Substance: RIBOCICLIB
     Indication: Breast cancer metastatic
     Dosage: 600 MILLIGRAM, QD (600 MG, QD (3X200MG) (DAYS 1-21 PLUS 7-DAY BREAK)
     Route: 065
     Dates: start: 20200924
  4. KISQALI [Suspect]
     Active Substance: RIBOCICLIB
     Dosage: 400 MILLIGRAM, QD (400 MG, QD (DAILY DOSE))
     Route: 065
     Dates: start: 20210527
  5. CALCIUM [Suspect]
     Active Substance: CALCIUM
     Indication: Breast cancer metastatic
     Dosage: UNK
     Route: 065
     Dates: start: 20200924
  6. DICLOFENAC POTASSIUM [Suspect]
     Active Substance: DICLOFENAC POTASSIUM
     Indication: Breast cancer metastatic
     Dosage: 75 MG
     Route: 048
     Dates: start: 20200924
  7. TRAMADOL [Concomitant]
     Active Substance: TRAMADOL
     Indication: Product used for unknown indication
     Dosage: UNK (50-100 DROPS IF NEEDED)
     Route: 065
  8. GOSERELIN [Concomitant]
     Active Substance: GOSERELIN
     Indication: Product used for unknown indication
     Dosage: 3.6 MILLIGRAM, 28D CYCLE (3.6 MG, EVENRY 28 DAYS)
     Route: 058
  9. LETROZOLE [Concomitant]
     Active Substance: LETROZOLE
     Indication: Product used for unknown indication
     Dosage: (2.5 MG, QD (1X1))2.5 MILLIGRAM, QD
     Route: 065

REACTIONS (5)
  - Neutropenia [Unknown]
  - Musculoskeletal chest pain [Unknown]
  - Depressed mood [Unknown]
  - Spinal pain [Unknown]
  - Asthenia [Not Recovered/Not Resolved]

NARRATIVE: CASE EVENT DATE: 20201106
